FAERS Safety Report 5535159-6 (Version None)
Quarter: 2007Q4

REPORT INFORMATION
  Report Type: 
  Country: None (occurrence: None)
  Receive Date: 20071206
  Receipt Date: 20071128
  Transmission Date: 20080405
  Serious: Yes (Hospitalization, Other)
  Sender: FDA-Public Use
  Company Number: PHMT2007CA02329

PATIENT
  Age: 26 Year
  Sex: Male

DRUGS (9)
  1. CLOZARIL [Suspect]
     Indication: SCHIZOPHRENIA
     Dosage: 525 MG, QD
     Route: 048
     Dates: start: 20070118
  2. CLOZARIL [Suspect]
     Dosage: 525 MG, QD
     Route: 048
     Dates: start: 20071114
  3. TENORMIN [Concomitant]
     Dosage: 100 MG, QD
     Route: 048
  4. LORAZEPAM [Concomitant]
     Dosage: 3 MG, Q4H
     Route: 048
  5. BENZTROPINE MESYLATE [Concomitant]
     Dosage: 2 MG, QD
     Route: 048
  6. COLACE [Concomitant]
     Dosage: 100 MG, BID
     Route: 048
  7. HALOPERIDOL [Concomitant]
     Indication: AGITATION
     Dosage: 5 MG, PRN
     Route: 030
  8. HEPARIN [Concomitant]
     Dosage: 7500 U, BID
     Route: 058
  9. DRUG THERAPY NOS [Concomitant]
     Dosage: 2/3, 1/3G 100ML/HR
     Route: 042

REACTIONS (2)
  - DISSOCIATIVE FUGUE [None]
  - SOMNOLENCE [None]
